FAERS Safety Report 5640573-4 (Version None)
Quarter: 2008Q1

REPORT INFORMATION
  Report Type: 
  Country: None (occurrence: None)
  Receive Date: 20080131
  Receipt Date: 20071107
  Transmission Date: 20080703
  Serious: No
  Sender: FDA-Public Use
  Company Number: 163-21880-07110512

PATIENT
  Age: 57 Year
  Sex: Male

DRUGS (8)
  1. REVLIMID [Suspect]
     Indication: MULTIPLE MYELOMA
     Dosage: 25 MG, DAILY FOR 21 DAYS, ORAL ; 25 MG, 1 IN 1 D, ORAL
     Route: 048
     Dates: start: 20060818, end: 20061001
  2. REVLIMID [Suspect]
     Indication: MULTIPLE MYELOMA
     Dosage: 25 MG, DAILY FOR 21 DAYS, ORAL ; 25 MG, 1 IN 1 D, ORAL
     Route: 048
     Dates: start: 20071010
  3. DEXAMETHASONE (DEXAMETHASONE) (4 MILLIGRAM, CAPSULES) [Concomitant]
  4. COREG [Concomitant]
  5. LISINOPRIL [Concomitant]
  6. ZOCOR [Concomitant]
  7. METHADONE HCL [Concomitant]
  8. ZOMETA [Concomitant]

REACTIONS (1)
  - FATIGUE [None]
